FAERS Safety Report 5080749-0 (Version None)
Quarter: 2006Q3

REPORT INFORMATION
  Report Type: 
  Country: None (occurrence: None)
  Receive Date: 20060809
  Receipt Date: 20060731
  Transmission Date: 20061208
  Serious: Yes (Hospitalization, Other)
  Sender: FDA-Public Use
  Company Number: 2006095072

PATIENT
  Sex: Female

DRUGS (1)
  1. CABERGOLINE [Suspect]
     Indication: DRUG USE FOR UNKNOWN INDICATION
     Dosage: (2 MG) ORAL
     Route: 048

REACTIONS (2)
  - GASTROINTESTINAL CARCINOMA [None]
  - METASTASES TO LUNG [None]
